FAERS Safety Report 16083023 (Version 1)
Quarter: 2019Q1

REPORT INFORMATION
  Report Type: Spontaneous
  Country: GR (occurrence: GR)
  Receive Date: 20190318
  Receipt Date: 20190318
  Transmission Date: 20190418
  Serious: Yes (Death, Other)
  Sender: FDA-Public Use
  Company Number: GR-BAUSCH-BL-2019-007858

PATIENT
  Age: 74 Year
  Sex: Male

DRUGS (3)
  1. VANCOMYCIN HYDROCHLORIDE. [Suspect]
     Active Substance: VANCOMYCIN HYDROCHLORIDE
     Indication: MENINGITIS VIRAL
     Route: 065
  2. ACYCLOVIR. [Suspect]
     Active Substance: ACYCLOVIR
     Indication: MENINGITIS VIRAL
     Route: 065
  3. MEROPENEM. [Suspect]
     Active Substance: MEROPENEM
     Indication: MENINGITIS VIRAL
     Route: 065

REACTIONS (6)
  - Atrial fibrillation [Unknown]
  - Drug ineffective for unapproved indication [Unknown]
  - Nervous system disorder [Unknown]
  - Septic shock [Fatal]
  - Subdural haemorrhage [Unknown]
  - Multiple organ dysfunction syndrome [Fatal]
